FAERS Safety Report 4995589-8 (Version None)
Quarter: 2006Q2

REPORT INFORMATION
  Report Type: 
  Country: None (occurrence: None)
  Receive Date: 20060508
  Receipt Date: 20060505
  Transmission Date: 20061013
  Serious: Yes (Other)
  Sender: FDA-Public Use
  Company Number: US-ROCHE-446742

PATIENT
  Age: 75 Year
  Sex: Female
  Weight: 95.3 kg

DRUGS (5)
  1. NAPROXEN [Suspect]
     Indication: DRUG USE FOR UNKNOWN INDICATION
     Route: 048
  2. ALEVE (CAPLET) [Suspect]
     Indication: DRUG USE FOR UNKNOWN INDICATION
     Dosage: TAKEN FOR A FEW WEEKS.
     Route: 048
     Dates: start: 20060315
  3. HYDROCHLOROTHIAZIDE [Concomitant]
  4. TOPRAL [Concomitant]
  5. CAPTOPRIL [Concomitant]

REACTIONS (2)
  - DYSSTASIA [None]
  - OEDEMA PERIPHERAL [None]
